FAERS Safety Report 6418793-0 (Version None)
Quarter: 2009Q4

REPORT INFORMATION
  Report Type: 
  Country: None (occurrence: None)
  Receive Date: 20091026
  Receipt Date: 20091014
  Transmission Date: 20100525
  Serious: Yes (Hospitalization)
  Sender: FDA-Public Use
  Company Number: 2009AC000195

PATIENT
  Age: 71 Year
  Sex: Male

DRUGS (13)
  1. DIGOXIN [Suspect]
     Indication: CARDIAC DISORDER
     Dosage: 0.125 MG; QD; PO
     Route: 048
  2. FUROSEMIDE [Concomitant]
  3. FLUTICASONE [Concomitant]
  4. VERAPAMIL [Concomitant]
  5. OMEPRAZOLE [Concomitant]
  6. INSULIN [Concomitant]
  7. MULTI-VITAMIN [Concomitant]
  8. AMITRIPTYLINE [Concomitant]
  9. ENALAPRIL [Concomitant]
  10. WARFARIN SODIUM [Concomitant]
  11. LOVASTATIN [Concomitant]
  12. NOVOLOG [Concomitant]
  13. LEVEMIR [Concomitant]

REACTIONS (29)
  - ADENOMA BENIGN [None]
  - ADRENAL ADENOMA [None]
  - ADRENAL DISORDER [None]
  - AORTIC ANEURYSM [None]
  - BENIGN PROSTATIC HYPERPLASIA [None]
  - BLOOD GLUCOSE INCREASED [None]
  - BRADYCARDIA [None]
  - CARDIAC FAILURE CONGESTIVE [None]
  - CELLULITIS [None]
  - CHRONIC OBSTRUCTIVE PULMONARY DISEASE [None]
  - CORONARY ARTERY DISEASE [None]
  - COUGH [None]
  - DIABETES MELLITUS [None]
  - DIZZINESS [None]
  - DYSPNOEA [None]
  - FATIGUE [None]
  - HYPERLIPIDAEMIA [None]
  - HYPERTENSION [None]
  - INSOMNIA [None]
  - LIPOMA [None]
  - MITRAL VALVE INCOMPETENCE [None]
  - NEPHROLITHIASIS [None]
  - NODULE [None]
  - OSTEOARTHRITIS [None]
  - PERIPHERAL VASCULAR DISORDER [None]
  - RENAL CYST [None]
  - RHINITIS ALLERGIC [None]
  - SLEEP APNOEA SYNDROME [None]
  - SNORING [None]
